FAERS Safety Report 4648542-8 (Version None)
Quarter: 2005Q2

REPORT INFORMATION
  Report Type: 
  Country: None (occurrence: None)
  Receive Date: 20050427
  Receipt Date: 20050414
  Transmission Date: 20051028
  Serious: Yes (Other)
  Sender: FDA-Public Use
  Company Number: 2005061375

PATIENT
  Sex: Male

DRUGS (2)
  1. BEXTRA [Suspect]
     Indication: TENDONITIS
     Dosage: (40 MG, UNKNOWN), ORAL
     Route: 048
     Dates: end: 20050101
  2. ROFECOXIB [Suspect]

REACTIONS (4)
  - ALOPECIA [None]
  - DIARRHOEA [None]
  - LIVER DISORDER [None]
  - SKIN EXFOLIATION [None]
